FAERS Safety Report 8273889-6 (Version None)
Quarter: 2012Q2

REPORT INFORMATION
  Report Type: 
  Country: None (occurrence: None)
  Receive Date: 20120411
  Receipt Date: 20120403
  Transmission Date: 20120825
  Serious: Yes (Hospitalization)
  Sender: FDA-Public Use
  Company Number: US-BAYER-2012-032425

PATIENT
  Age: 33 Year
  Sex: Female

DRUGS (5)
  1. HALDOL [Concomitant]
  2. YAZ [Suspect]
     Dosage: UNK
     Dates: start: 20100901, end: 20101201
  3. RISPERDAL [Concomitant]
  4. ABILIFY [Concomitant]
  5. MULTI-VITAMIN [Concomitant]

REACTIONS (8)
  - RIGHT VENTRICULAR HYPERTROPHY [None]
  - EMOTIONAL DISTRESS [None]
  - PULMONARY EMBOLISM [None]
  - ANXIETY [None]
  - PAIN [None]
  - INJURY [None]
  - GENERAL PHYSICAL HEALTH DETERIORATION [None]
  - DEEP VEIN THROMBOSIS [None]
